FAERS Safety Report 11072041 (Version 1)
Quarter: 2015Q2

REPORT INFORMATION
  Report Type: Spontaneous
  Country: US (occurrence: None)
  Receive Date: 20150427
  Receipt Date: 20150427
  Transmission Date: 20150821
  Serious: Yes (Disabling)
  Sender: FDA-Public Use
  Company Number: None

PATIENT
  Age: 35 Year
  Sex: Female
  Weight: 115.67 kg

DRUGS (5)
  1. WOMAN^S MULTIVITAMIN [Concomitant]
  2. KLONIPIN [Concomitant]
     Active Substance: CLONAZEPAM
  3. B-COMPLEX VITAMIN [Concomitant]
  4. SAPHRIS [Suspect]
     Active Substance: ASENAPINE MALEATE
     Indication: SCHIZOAFFECTIVE DISORDER
     Route: 060
     Dates: start: 20140310, end: 20140424
  5. PROZAC [Concomitant]
     Active Substance: FLUOXETINE HYDROCHLORIDE

REACTIONS (5)
  - Abdominal pain upper [None]
  - Malaise [None]
  - Fatigue [None]
  - Diarrhoea [None]
  - Constipation [None]

NARRATIVE: CASE EVENT DATE: 20150424
